FAERS Safety Report 4904587-1 (Version None)
Quarter: 2006Q1

REPORT INFORMATION
  Report Type: 
  Country: None (occurrence: None)
  Receive Date: 20060208
  Receipt Date: 20051130
  Transmission Date: 20060701
  Serious: Yes (Hospitalization)
  Sender: FDA-Public Use
  Company Number: US-ROCHE-427194

PATIENT
  Age: 51 Year
  Sex: Male
  Weight: 122.5 kg

DRUGS (6)
  1. PEGASYS [Suspect]
     Dosage: ROUTE: INJECTABLE.
     Route: 065
     Dates: start: 20050215, end: 20050415
  2. COPEGUS [Suspect]
     Dosage: ADMINISTERED DAILY.
     Route: 048
     Dates: start: 20050215, end: 20050415
  3. COZAAR [Concomitant]
     Route: 048
     Dates: start: 20020615
  4. ZETIA [Concomitant]
     Dates: start: 20001001
  5. UNIDENTIFIED DRUGS [Concomitant]
     Dates: start: 20010202
  6. WELCHOL [Concomitant]

REACTIONS (5)
  - BLOOD GLUCOSE INCREASED [None]
  - BLOOD PRESSURE INCREASED [None]
  - CARDIAC ENZYMES INCREASED [None]
  - DIZZINESS [None]
  - SENSORY DISTURBANCE [None]
